FAERS Safety Report 12660797 (Version 2)
Quarter: 2016Q3

REPORT INFORMATION
  Report Type: Spontaneous
  Country: US (occurrence: US)
  Receive Date: 20160817
  Receipt Date: 20160901
  Transmission Date: 20161109
  Serious: No
  Sender: FDA-Public Use
  Company Number: US-RELYPSA-RLY2016001178

PATIENT
  Sex: Female

DRUGS (15)
  1. PROAIR HFA [Suspect]
     Active Substance: ALBUTEROL SULFATE
  2. VICTOZA [Concomitant]
     Active Substance: LIRAGLUTIDE
  3. CLOPIDOGREL BISULFATE. [Concomitant]
     Active Substance: CLOPIDOGREL BISULFATE
  4. RESTASIS [Concomitant]
     Active Substance: CYCLOSPORINE
  5. FUROSEMIDE. [Concomitant]
     Active Substance: FUROSEMIDE
  6. BIOTIN [Concomitant]
     Active Substance: BIOTIN
  7. DOXYCYCLINE HYCLATE. [Concomitant]
     Active Substance: DOXYCYCLINE HYCLATE
  8. PRAVACHOL [Concomitant]
     Active Substance: PRAVASTATIN SODIUM
  9. CLONIDINE HCL [Concomitant]
     Active Substance: CLONIDINE HYDROCHLORIDE
  10. VELTASSA [Suspect]
     Active Substance: PATIROMER
     Indication: HYPERKALAEMIA
     Dosage: 8.4 G, Q.D.
     Route: 048
     Dates: start: 20160511
  11. ASPIRIN                            /00002701/ [Concomitant]
     Active Substance: ASPIRIN
  12. BENICAR [Concomitant]
     Active Substance: OLMESARTAN MEDOXOMIL
  13. CARVEDILOL. [Concomitant]
     Active Substance: CARVEDILOL
  14. LEVEMIR [Concomitant]
     Active Substance: INSULIN DETEMIR
  15. SYNTHROID [Concomitant]
     Active Substance: LEVOTHYROXINE SODIUM

REACTIONS (1)
  - Pruritus [Not Recovered/Not Resolved]
